FAERS Safety Report 10180972 (Version 1)
Quarter: 2014Q2

REPORT INFORMATION
  Report Type: Spontaneous
  Country: BR (occurrence: BR)
  Receive Date: 20140519
  Receipt Date: 20140519
  Transmission Date: 20141212
  Serious: Yes (Hospitalization)
  Sender: FDA-Public Use
  Company Number: BR-PFIZER INC-2014133927

PATIENT
  Age: 69 Year
  Sex: Female
  Weight: 49 kg

DRUGS (6)
  1. ATENOLOL [Suspect]
     Indication: HYPERTENSION
     Dosage: 25 MG, 2X/DAY
     Route: 048
     Dates: start: 201312
  2. ROSUVASTATIN [Suspect]
     Indication: BLOOD CHOLESTEROL INCREASED
     Dosage: 20 MG, DAILY
     Route: 048
     Dates: end: 201402
  3. ROSUVASTATIN [Suspect]
     Dosage: 0.5 DF, DAILY
     Route: 048
     Dates: start: 201402
  4. BRILINTA [Suspect]
     Indication: PROPHYLAXIS
     Dosage: 90 MG, 2X/DAY
     Route: 048
     Dates: start: 201304, end: 201402
  5. ENALAPRIL [Suspect]
     Indication: HYPERTENSION
     Dosage: DAILY
     Route: 048
     Dates: end: 201312
  6. AMLODIPINE [Concomitant]
     Indication: HYPERTENSION
     Dosage: 0.5 DF, DAILY
     Route: 048
     Dates: start: 201312

REACTIONS (5)
  - Coronary artery occlusion [Recovered/Resolved]
  - Carotid artery occlusion [Recovered/Resolved]
  - Ulcer haemorrhage [Recovered/Resolved]
  - Fatigue [Unknown]
  - Off label use [Not Recovered/Not Resolved]
